FAERS Safety Report 8896771 (Version 2)
Quarter: 2012Q4

REPORT INFORMATION
  Report Type: 
  Country: US (occurrence: US)
  Receive Date: 20121108
  Receipt Date: 20121212
  Transmission Date: 20130627
  Serious: No
  Sender: FDA-Public Use
  Company Number: US-BAYER-2012-117083

PATIENT
  Age: 25 Year
  Sex: Female

DRUGS (1)
  1. GADAVIST [Suspect]

REACTIONS (2)
  - Urticaria [None]
  - Nausea [None]
